FAERS Safety Report 4340334-2 (Version None)
Quarter: 2004Q2

REPORT INFORMATION
  Report Type: 
  Country: None (occurrence: None)
  Receive Date: 20040401
  Receipt Date: 20040318
  Transmission Date: 20050107
  Serious: Yes (Hospitalization)
  Sender: FDA-Public Use
  Company Number: 200410145BYL

PATIENT
  Age: 6 Month
  Sex: Male
  Weight: 7.3 kg

DRUGS (3)
  1. GAMIMUNE N 5% [Suspect]
     Indication: KAWASAKI'S DISEASE
     Dosage: 7.5 G, TOTAL DAILY, INTRAVENOUS DRIP
     Route: 041
     Dates: start: 20031029, end: 20031030
  2. ASPIRIN [Suspect]
     Indication: ANTICOAGULANT THERAPY
     Dosage: 0.2 G, TOTAL DAILY, ORAL; 0.06 G, TOTAL DAILY, ORAL
     Route: 048
     Dates: start: 20031029, end: 20031030
  3. ASPIRIN [Suspect]
     Indication: ANTICOAGULANT THERAPY
     Dosage: 0.2 G, TOTAL DAILY, ORAL; 0.06 G, TOTAL DAILY, ORAL
     Route: 048
     Dates: start: 20031031, end: 20031103

REACTIONS (4)
  - ALANINE AMINOTRANSFERASE INCREASED [None]
  - ASPARTATE AMINOTRANSFERASE INCREASED [None]
  - BLOOD LACTATE DEHYDROGENASE INCREASED [None]
  - GAMMA-GLUTAMYLTRANSFERASE INCREASED [None]
